FAERS Safety Report 25999942 (Version 1)
Quarter: 2025Q4

REPORT INFORMATION
  Report Type: Spontaneous
  Country: US (occurrence: None)
  Receive Date: 20251104
  Receipt Date: 20251104
  Transmission Date: 20260118
  Serious: Yes (Hospitalization)
  Sender: FDA-CTU
  Company Number: None

PATIENT
  Age: 75 Year
  Sex: Male

DRUGS (11)
  1. POMALYST [Suspect]
     Active Substance: POMALIDOMIDE
     Indication: Plasma cell myeloma
     Dosage: 4MG DAILY ORAL ? ?EXPIRATION DATE: 8/2026  AND 10,2028
     Route: 048
     Dates: start: 20240718
  2. AMIODARONE [Concomitant]
     Active Substance: AMIODARONE
  3. ELIQUIS [Concomitant]
     Active Substance: APIXABAN
  4. ATORVASTATIN [Concomitant]
     Active Substance: ATORVASTATIN
  5. ASPIRIN [Concomitant]
     Active Substance: ASPIRIN
  6. ZOMETA [Concomitant]
     Active Substance: ZOLEDRONIC ACID
  7. DEXAMETHASONE [Concomitant]
     Active Substance: DEXAMETHASONE
  8. HERBALS\TURMERIC [Concomitant]
     Active Substance: HERBALS\TURMERIC
  9. MAGNESIUM [Concomitant]
     Active Substance: MAGNESIUM
  10. ZOFRAN [Concomitant]
     Active Substance: ONDANSETRON HYDROCHLORIDE
  11. GLUCOSAMINE CHONDROITON [Concomitant]

REACTIONS (1)
  - Heart rate abnormal [None]

NARRATIVE: CASE EVENT DATE: 20251029
